FAERS Safety Report 17444073 (Version 1)
Quarter: 2020Q1

REPORT INFORMATION
  Report Type: Spontaneous
  Country: GB (occurrence: GB)
  Receive Date: 20200221
  Receipt Date: 20200221
  Transmission Date: 20200409
  Serious: Yes (Other)
  Sender: FDA-Public Use
  Company Number: GB-009507513-2002GBR007009

PATIENT
  Age: 76 Year

DRUGS (2)
  1. PEMBROLIZUMAB. [Suspect]
     Active Substance: PEMBROLIZUMAB
     Dosage: UNK
     Dates: start: 201707
  2. CRIZOTINIB [Suspect]
     Active Substance: CRIZOTINIB
     Dosage: UNK
     Dates: start: 201802

REACTIONS (3)
  - Hepatitis [Unknown]
  - Neutropenia [Unknown]
  - Nephritis [Unknown]

NARRATIVE: CASE EVENT DATE: 201803
